FAERS Safety Report 20728943 (Version 1)
Quarter: 2022Q2

REPORT INFORMATION
  Report Type: Spontaneous
  Country: ES (occurrence: ES)
  Receive Date: 20220420
  Receipt Date: 20220420
  Transmission Date: 20220721
  Serious: Yes (Hospitalization, Other)
  Sender: FDA-Public Use
  Company Number: ES-MACLEODS PHARMACEUTICALS US LTD-MAC2022035260

PATIENT

DRUGS (24)
  1. ESCITALOPRAM [Interacting]
     Active Substance: ESCITALOPRAM OXALATE
     Indication: Schizoaffective disorder
     Dosage: 15 MILLIGRAM, QD
     Route: 065
     Dates: start: 1994, end: 201512
  2. ESCITALOPRAM [Interacting]
     Active Substance: ESCITALOPRAM OXALATE
     Dosage: 15 MILLIGRAM, QD
     Route: 065
     Dates: start: 201606, end: 201609
  3. ESCITALOPRAM [Interacting]
     Active Substance: ESCITALOPRAM OXALATE
     Dosage: UNK
     Route: 065
     Dates: start: 201702, end: 201705
  4. OLANZAPINE [Interacting]
     Active Substance: OLANZAPINE
     Indication: Schizoaffective disorder
     Dosage: UNK
     Route: 065
     Dates: start: 201610, end: 201702
  5. OLANZAPINE [Interacting]
     Active Substance: OLANZAPINE
     Dosage: 20 MILLIGRAM, QD
     Route: 065
     Dates: start: 201705, end: 201712
  6. QUETIAPINE [Interacting]
     Active Substance: QUETIAPINE
     Indication: Schizoaffective disorder
     Dosage: 100 MILLIGRAM, QD
     Route: 065
     Dates: start: 201604, end: 201606
  7. FLUOXETINE [Interacting]
     Active Substance: FLUOXETINE HYDROCHLORIDE
     Indication: Schizoaffective disorder
     Dosage: 20 MILLIGRAM, QD
     Route: 065
     Dates: start: 201604, end: 201606
  8. HALOPERIDOL [Interacting]
     Active Substance: HALOPERIDOL
     Indication: Schizoaffective disorder
     Dosage: UNK
     Route: 065
     Dates: start: 2017
  9. AMISULPRIDE [Interacting]
     Active Substance: AMISULPRIDE
     Indication: Schizoaffective disorder
     Dosage: 400 MILLIGRAM, QD
     Route: 065
     Dates: start: 1994, end: 201512
  10. AMISULPRIDE [Interacting]
     Active Substance: AMISULPRIDE
     Dosage: 800 MILLIGRAM, QD
     Route: 065
     Dates: start: 201512, end: 201604
  11. AMISULPRIDE [Interacting]
     Active Substance: AMISULPRIDE
     Dosage: 600 MILLIGRAM, QD
     Route: 065
     Dates: start: 201604, end: 201606
  12. AMISULPRIDE [Interacting]
     Active Substance: AMISULPRIDE
     Dosage: 400 MILLIGRAM, QD
     Route: 065
     Dates: start: 201606, end: 201702
  13. LORAZEPAM [Suspect]
     Active Substance: LORAZEPAM
     Indication: Schizoaffective disorder
     Dosage: UNK
     Route: 065
     Dates: start: 201604, end: 2016
  14. LORAZEPAM [Suspect]
     Active Substance: LORAZEPAM
     Dosage: UNK
     Route: 065
     Dates: start: 2017
  15. CLOBAZAM [Interacting]
     Active Substance: CLOBAZAM
     Indication: Schizoaffective disorder
     Dosage: UNK
     Route: 065
     Dates: start: 1994, end: 201512
  16. TRAZODONE [Interacting]
     Active Substance: TRAZODONE HYDROCHLORIDE
     Indication: Schizoaffective disorder
     Dosage: 200 MILLIGRAM, QD
     Route: 065
     Dates: start: 1994, end: 201512
  17. TRAZODONE [Interacting]
     Active Substance: TRAZODONE HYDROCHLORIDE
     Dosage: 200 MILLIGRAM, QD
     Route: 065
     Dates: start: 201606, end: 201609
  18. VALPROATE SODIUM [Suspect]
     Active Substance: VALPROATE SODIUM
     Indication: Schizoaffective disorder
     Dosage: 500 MILLIGRAM, QD
     Route: 065
     Dates: start: 201606, end: 201609
  19. VALPROATE SODIUM [Suspect]
     Active Substance: VALPROATE SODIUM
     Dosage: UNK
     Route: 065
     Dates: start: 201610, end: 201705
  20. LITHIUM [Concomitant]
     Active Substance: LITHIUM
     Indication: Suicide attempt
     Dosage: 800 MILLIGRAM, QD
     Route: 065
     Dates: start: 1994, end: 201604
  21. LITHIUM [Concomitant]
     Active Substance: LITHIUM
     Indication: Schizoaffective disorder
     Dosage: UNK
     Route: 065
     Dates: start: 201702, end: 201705
  22. Lorametazepam [Concomitant]
     Indication: Schizoaffective disorder
     Dosage: UNK
     Route: 065
     Dates: start: 201604, end: 2016
  23. Lorametazepam [Concomitant]
     Dosage: UNK
     Route: 065
     Dates: start: 2017
  24. CLONAZEPAM [Concomitant]
     Active Substance: CLONAZEPAM
     Indication: Schizoaffective disorder
     Dosage: UNK
     Route: 065
     Dates: start: 2017

REACTIONS (9)
  - Deep vein thrombosis [Unknown]
  - Gastrointestinal haemorrhage [Unknown]
  - Drug level increased [Unknown]
  - Drug interaction [Unknown]
  - Drug-genetic interaction [Unknown]
  - Sedation complication [Unknown]
  - Extrapyramidal disorder [Unknown]
  - Somnolence [Unknown]
  - Insomnia [Unknown]

NARRATIVE: CASE EVENT DATE: 20160101
